FAERS Safety Report 5685237-6 (Version None)
Quarter: 2008Q1

REPORT INFORMATION
  Report Type: 
  Country: None (occurrence: None)
  Receive Date: 20080328
  Receipt Date: 20080321
  Transmission Date: 20080703
  Serious: Yes (Life-Threatening, Disabling, Other)
  Sender: FDA-Public Use
  Company Number: JP-PFIZER INC-2008009378

PATIENT
  Sex: Male
  Weight: 76.5 kg

DRUGS (5)
  1. ZOLOFT [Suspect]
     Indication: DEPRESSION
     Dosage: DAILY DOSE:100MG
     Route: 048
  2. AMOXAN [Concomitant]
     Route: 048
  3. ANAFRANIL [Concomitant]
     Route: 048
  4. REQUIP [Concomitant]
     Route: 048
  5. BETA BLOCKING AGENTS [Concomitant]

REACTIONS (5)
  - CARDIOMEGALY [None]
  - CONGESTIVE CARDIOMYOPATHY [None]
  - PALPITATIONS [None]
  - PNEUMONIA [None]
  - SWEAT GLAND DISORDER [None]
